APPROVED DRUG PRODUCT: ATNAA
Active Ingredient: ATROPINE; PRALIDOXIME CHLORIDE
Strength: 2.1MG/0.7ML;600MG/2ML
Dosage Form/Route: INJECTABLE;INTRAMUSCULAR
Application: N021175 | Product #001
Applicant: US ARMY MEDICAL RESEARCH MATERIEL COMMAND
Approved: Jan 17, 2002 | RLD: No | RS: No | Type: DISCN